FAERS Safety Report 7917772-1 (Version None)
Quarter: 2011Q4

REPORT INFORMATION
  Report Type: 
  Country: None (occurrence: None)
  Receive Date: 20111116
  Receipt Date: 20111109
  Transmission Date: 20120403
  Serious: Yes (Other)
  Sender: FDA-Public Use
  Company Number: HR-JNJFOC-20101004265

PATIENT
  Age: 22 Year
  Sex: Male

DRUGS (9)
  1. RISPERIDONE [Suspect]
     Indication: ACUTE PSYCHOSIS
     Dosage: DOSE: 1MG/ML
     Route: 065
     Dates: start: 20080311, end: 20080318
  2. RISPERIDONE [Suspect]
     Indication: ILL-DEFINED DISORDER
     Route: 030
     Dates: start: 20090908
  3. AKINETON [Concomitant]
     Route: 065
  4. ZIPRASIDONE HYDROCHLORIDE [Suspect]
     Indication: ACUTE PSYCHOSIS
     Route: 065
  5. HALOPERIDOL [Suspect]
     Indication: ACUTE PSYCHOSIS
     Route: 065
  6. RISPERIDONE [Suspect]
     Dosage: DOSE: 1MG/ML
     Route: 065
     Dates: start: 20080513, end: 20090520
  7. RISPERIDONE [Suspect]
     Dosage: DOSE: 1MG/ML
     Route: 065
     Dates: start: 20080318, end: 20080513
  8. DIAZEPAM [Concomitant]
     Route: 065
  9. OLANZAPINE [Suspect]
     Indication: ACUTE PSYCHOSIS
     Route: 065

REACTIONS (6)
  - DYSKINESIA [None]
  - BLOOD TRIGLYCERIDES INCREASED [None]
  - HYPERPROLACTINAEMIA [None]
  - DEPERSONALISATION [None]
  - WEIGHT INCREASED [None]
  - DEREALISATION [None]
